FAERS Safety Report 13973767 (Version 2)
Quarter: 2017Q3

REPORT INFORMATION
  Report Type: Spontaneous
  Country: FR (occurrence: FR)
  Receive Date: 20170915
  Receipt Date: 20170925
  Transmission Date: 20171128
  Serious: Yes (Hospitalization, Other)
  Sender: FDA-Public Use
  Company Number: FR-MYLANLABS-2017M1057194

PATIENT
  Age: 89 Year
  Sex: Female

DRUGS (3)
  1. COUMADINE [Suspect]
     Active Substance: WARFARIN SODIUM
     Dosage: DOSE INCREASED
     Route: 048
     Dates: start: 20170708, end: 20170719
  2. COUMADINE [Suspect]
     Active Substance: WARFARIN SODIUM
     Indication: EMBOLISM
     Dosage: UNK
     Route: 048
     Dates: start: 201705, end: 20170708
  3. FONDAPARINUX [Suspect]
     Active Substance: FONDAPARINUX
     Indication: EMBOLISM
     Dosage: UNK
     Route: 058
     Dates: start: 20170708, end: 20170717

REACTIONS (3)
  - International normalised ratio increased [Recovered/Resolved]
  - Pain [Recovered/Resolved]
  - Muscle haemorrhage [Recovered/Resolved]

NARRATIVE: CASE EVENT DATE: 20170717
